FAERS Safety Report 11030904 (Version 1)
Quarter: 2015Q2

REPORT INFORMATION
  Report Type: Spontaneous
  Country: US (occurrence: US)
  Receive Date: 20150415
  Receipt Date: 20150415
  Transmission Date: 20150821
  Serious: Yes (Other)
  Sender: FDA-Public Use
  Company Number: CHPA2015US004949

PATIENT
  Age: 71 Year
  Sex: Female

DRUGS (5)
  1. GAS-X EXTRA STRENGTH [Suspect]
     Active Substance: DIMETHICONE
     Indication: GASTROOESOPHAGEAL REFLUX DISEASE
     Dosage: 2 DF, UNK
     Route: 048
  2. LORATADINE. [Concomitant]
     Active Substance: LORATADINE
     Indication: PRODUCT USED FOR UNKNOWN INDICATION
     Dosage: UNK
     Route: 065
  3. GAS-X EXTRA STRENGTH [Suspect]
     Active Substance: DIMETHICONE
     Dosage: UNK
     Route: 048
  4. OMEPRAZOLE. [Concomitant]
     Active Substance: OMEPRAZOLE
     Indication: PRODUCT USED FOR UNKNOWN INDICATION
     Route: 065
  5. DEPAKOTE [Concomitant]
     Active Substance: DIVALPROEX SODIUM
     Indication: PRODUCT USED FOR UNKNOWN INDICATION
     Route: 065

REACTIONS (7)
  - Benign neoplasm [Recovered/Resolved]
  - Cough [Not Recovered/Not Resolved]
  - Weight increased [Unknown]
  - Fall [Recovered/Resolved]
  - Product use issue [Unknown]
  - Crying [Recovered/Resolved]
  - Ocular hyperaemia [Recovered/Resolved]
